FAERS Safety Report 11450205 (Version 1)
Quarter: 2015Q3

REPORT INFORMATION
  Report Type: Spontaneous
  Country: US (occurrence: US)
  Receive Date: 20150903
  Receipt Date: 20150903
  Transmission Date: 20151125
  Serious: No
  Sender: FDA-Public Use
  Company Number: US-ROCHE-1074792

PATIENT
  Sex: Male

DRUGS (2)
  1. RIBAVIRIN. [Suspect]
     Active Substance: RIBAVIRIN
     Indication: PRODUCT USED FOR UNKNOWN INDICATION
     Dosage: DAILY DIVIDED DOSES
     Route: 065
     Dates: start: 20111211
  2. PEGASYS [Suspect]
     Active Substance: PEGINTERFERON ALFA-2A
     Indication: PRODUCT USED FOR UNKNOWN INDICATION
     Dosage: WEEKLY
     Route: 058
     Dates: start: 20111211

REACTIONS (6)
  - Abdominal pain upper [Unknown]
  - Chills [Unknown]
  - Gastroenteritis viral [Unknown]
  - Diarrhoea [Unknown]
  - Pyrexia [Unknown]
  - Nausea [Unknown]
